FAERS Safety Report 7555396-9 (Version None)
Quarter: 2011Q2

REPORT INFORMATION
  Report Type: 
  Country: None (occurrence: None)
  Receive Date: 20110617
  Receipt Date: 20110607
  Transmission Date: 20111010
  Serious: Yes (Hospitalization)
  Sender: FDA-Public Use
  Company Number: US-PURDUE-USA-2011-0069647

PATIENT
  Sex: Male

DRUGS (1)
  1. COLACE CAPSULES [Suspect]
     Indication: FAECALOMA
     Dosage: 1 CAPSL, BID

REACTIONS (1)
  - FAECALOMA [None]
